FAERS Safety Report 15221472 (Version 1)
Quarter: 2018Q3

REPORT INFORMATION
  Report Type: Spontaneous
  Country: US (occurrence: US)
  Receive Date: 20180731
  Receipt Date: 20180731
  Transmission Date: 20181010
  Serious: No
  Sender: FDA-Public Use
  Company Number: US-PFIZER INC-2018305476

PATIENT
  Age: 5 Year
  Sex: Female

DRUGS (1)
  1. GENOTROPIN [Suspect]
     Active Substance: SOMATROPIN
     Dosage: 0.8 MG, UNK [0.8MG , 6 DAYS A WEEK]
     Dates: start: 20160229

REACTIONS (7)
  - Insulin-like growth factor decreased [Unknown]
  - Haematocrit increased [Unknown]
  - Weight gain poor [Unknown]
  - Aspartate aminotransferase increased [Unknown]
  - Blood calcium increased [Unknown]
  - Anion gap increased [Unknown]
  - Blood chloride decreased [Unknown]
